FAERS Safety Report 9808340 (Version 2)
Quarter: 2014Q1

REPORT INFORMATION
  Report Type: Spontaneous
  Country: BE (occurrence: BE)
  Receive Date: 20140110
  Receipt Date: 20140110
  Transmission Date: 20141002
  Serious: Yes (Death)
  Sender: FDA-Public Use
  Company Number: BE-BAXTER-2013BAX051518

PATIENT
  Sex: Female

DRUGS (2)
  1. EXTRANEAL [Suspect]
     Indication: PERITONEAL DIALYSIS
     Route: 033
     Dates: end: 20131218
  2. PHYSIONEAL 40 GLUCOSE 1.36% [Suspect]
     Indication: PERITONEAL DIALYSIS
     Route: 033
     Dates: end: 20131218

REACTIONS (2)
  - Sepsis [Fatal]
  - Peritonitis [Fatal]
